FAERS Safety Report 4426819-9 (Version None)
Quarter: 2004Q3

REPORT INFORMATION
  Report Type: 
  Country: None (occurrence: None)
  Receive Date: 20040816
  Receipt Date: 20040625
  Transmission Date: 20050211
  Serious: Yes (Disabling)
  Sender: FDA-Public Use
  Company Number: AT-GLAXOSMITHKLINE-B0337448A

PATIENT
  Age: 51 Year
  Sex: Male
  Weight: 72 kg

DRUGS (4)
  1. AUGMENTIN '125' [Suspect]
     Dosage: 2.2G TWICE PER DAY
     Route: 042
     Dates: start: 20040618, end: 20040624
  2. NEODOLPASSE [Suspect]
     Route: 042
     Dates: start: 20040616, end: 20040630
  3. NIMESULIDE [Concomitant]
     Indication: PAIN
     Dosage: 100MG TWICE PER DAY
     Route: 048
     Dates: start: 20040619, end: 20040630
  4. WOBENZYM [Concomitant]
     Dosage: 3TAB SEVEN TIMES PER DAY
     Route: 048
     Dates: start: 20040623, end: 20040630

REACTIONS (7)
  - ALANINE AMINOTRANSFERASE INCREASED [None]
  - ASTHENIA [None]
  - BLOOD CHOLINESTERASE DECREASED [None]
  - FATIGUE [None]
  - GAMMA-GLUTAMYLTRANSFERASE INCREASED [None]
  - HEPATIC ENZYME INCREASED [None]
  - SENSORY DISTURBANCE [None]
